FAERS Safety Report 6545504-0 (Version None)
Quarter: 2010Q1

REPORT INFORMATION
  Report Type: 
  Country: None (occurrence: None)
  Receive Date: 20100121
  Receipt Date: 20100112
  Transmission Date: 20100710
  Serious: Yes (Other)
  Sender: FDA-Public Use
  Company Number: CA-PFIZER INC-2010004861

PATIENT
  Age: 60 Year
  Sex: Male

DRUGS (1)
  1. LIPITOR [Suspect]
     Indication: CORONARY ARTERY BYPASS
     Dosage: UNK
     Dates: start: 20000101

REACTIONS (2)
  - MEMORY IMPAIRMENT [None]
  - PSORIASIS [None]
